FAERS Safety Report 7153883-9 (Version None)
Quarter: 2010Q4

REPORT INFORMATION
  Report Type: 
  Country: None (occurrence: None)
  Receive Date: 20101129
  Receipt Date: 20101112
  Transmission Date: 20110411
  Serious: Yes (Other)
  Sender: FDA-Public Use
  Company Number: 021937

PATIENT
  Sex: Male

DRUGS (5)
  1. CIMZIA [Suspect]
     Indication: ARTHRITIS
     Dosage: 400 MG 1X/2 WEEKS SUBCUTANEOUS
     Route: 058
     Dates: end: 20101020
  2. DURAPREDNISOLON [Concomitant]
  3. ARCOXIA [Concomitant]
  4. LYRICA [Concomitant]
  5. TRIPTYL [Concomitant]

REACTIONS (1)
  - DRUG HYPERSENSITIVITY [None]
